FAERS Safety Report 10171434 (Version 1)
Quarter: 2014Q2

REPORT INFORMATION
  Report Type: Spontaneous
  Country: US (occurrence: None)
  Receive Date: 20140513
  Receipt Date: 20140513
  Transmission Date: 20141212
  Serious: Yes (Hospitalization)
  Sender: FDA-Public Use
  Company Number: None

PATIENT
  Age: 82 Year
  Sex: Male

DRUGS (4)
  1. PHENYTOIN [Suspect]
     Indication: CONVULSION PROPHYLAXIS
     Route: 042
     Dates: start: 20140131, end: 20140131
  2. LORAZEPAM [Concomitant]
  3. NITROGLYCERIN [Concomitant]
  4. PHENOBARBITAL [Concomitant]

REACTIONS (2)
  - Injection site discolouration [None]
  - Infusion related reaction [None]
